FAERS Safety Report 8164181-9 (Version None)
Quarter: 2012Q1

REPORT INFORMATION
  Report Type: 
  Country: None (occurrence: None)
  Receive Date: 20120224
  Receipt Date: 20120215
  Transmission Date: 20120608
  Serious: Yes (Other)
  Sender: FDA-Public Use
  Company Number: BR-ABBOTT-10P-020-0664468-00

PATIENT
  Sex: Female
  Weight: 47 kg

DRUGS (12)
  1. NIMESULIDE [Suspect]
     Indication: INFLAMMATION
     Route: 048
  2. SODIUM CHLORIDE [Concomitant]
     Indication: OSTEOARTHRITIS
     Route: 048
  3. HUMIRA [Suspect]
     Route: 058
     Dates: end: 20101020
  4. SYNTHROID [Concomitant]
     Indication: THYROID DISORDER
     Route: 048
  5. RISEDRONATE SODIUM [Concomitant]
     Indication: OSTEOARTHRITIS
     Route: 048
  6. ARAVA [Suspect]
     Indication: RHEUMATOID ARTHRITIS
     Route: 048
  7. HUMIRA [Suspect]
     Indication: RHEUMATOID ARTHRITIS
     Route: 058
     Dates: end: 20100704
  8. CALCIUM PHOSPHATE W/COLECALCIFEROL [Concomitant]
     Indication: BONE DISORDER
     Dosage: 400/600 MG
     Route: 048
  9. DEFLAZACORT [Concomitant]
     Indication: INFLAMMATION
  10. CALCIUM PHOSPHATE W/COLECALCIFEROL [Concomitant]
     Indication: MINERAL SUPPLEMENTATION
  11. DEFLAZACORT [Concomitant]
     Indication: MUSCULOSKELETAL PAIN
     Route: 048
  12. OMEPRAZOLE [Concomitant]
     Indication: ABDOMINAL PAIN UPPER
     Route: 048

REACTIONS (10)
  - SOMNOLENCE [None]
  - MUSCLE FATIGUE [None]
  - MALAISE [None]
  - WOUND [None]
  - NAUSEA [None]
  - ARTHROPATHY [None]
  - ASTHENIA [None]
  - NASOPHARYNGITIS [None]
  - BLOOD CHOLESTEROL INCREASED [None]
  - DIZZINESS [None]
